FAERS Safety Report 8790043 (Version 3)
Quarter: 2014Q1

REPORT INFORMATION
  Report Type: Report from Study
  Country: PL (occurrence: PL)
  Receive Date: 20120917
  Receipt Date: 20140116
  Transmission Date: 20141002
  Serious: Yes (Hospitalization)
  Sender: FDA-Public Use
  Company Number: PL-UCBSA-064894

PATIENT
  Age: 31 Year
  Sex: Male
  Weight: 51.1 kg

DRUGS (12)
  1. LACOSAMIDE [Suspect]
     Indication: EPILEPSY
     Route: 048
     Dates: start: 20100817, end: 20120229
  2. LACOSAMIDE [Suspect]
     Indication: EPILEPSY
     Route: 048
     Dates: start: 20120301, end: 20120806
  3. LACOSAMIDE [Suspect]
     Indication: EPILEPSY
     Route: 048
     Dates: start: 20120807, end: 20120813
  4. LACOSAMIDE [Suspect]
     Indication: EPILEPSY
     Route: 048
     Dates: start: 20120814, end: 20120820
  5. LAMITRIN [Concomitant]
     Indication: EPILEPSY
     Dates: start: 20100817, end: 20100913
  6. LAMITRIN [Concomitant]
     Indication: EPILEPSY
     Dates: start: 20100817, end: 20100913
  7. LAMITRIN [Concomitant]
     Indication: EPILEPSY
     Dates: start: 20100914
  8. CARBAMAZEPINE [Concomitant]
     Indication: EPILEPSY
  9. GABAPENTIN [Concomitant]
     Indication: EPILEPSY
  10. PHENYTOIN [Concomitant]
     Indication: EPILEPSY
  11. TIAGABINE [Concomitant]
     Indication: EPILEPSY
  12. BRIVARACETAM [Concomitant]
     Indication: EPILEPSY

REACTIONS (1)
  - Status epilepticus [Recovered/Resolved]
